FAERS Safety Report 10204486 (Version 1)
Quarter: 2014Q2

REPORT INFORMATION
  Report Type: Spontaneous
  Country: AU (occurrence: None)
  Receive Date: 20140527
  Receipt Date: 20140527
  Transmission Date: 20141212
  Serious: Yes (Other)
  Sender: FDA-Public Use
  Company Number: AT-ALKEM-000595

PATIENT
  Age: 88 Year
  Sex: Female
  Weight: 53 kg

DRUGS (8)
  1. AMLODIPINE (AMLOPDINE) [Suspect]
     Indication: PRODUCT USED FOR UNKNOWN INDICATION
  2. VALPROIC ACID (VALPROIC ACID) [Suspect]
     Indication: STATUS EPILEPTICUS
  3. MIRTAZAPIN [Suspect]
     Indication: PRODUCT USED FOR UNKNOWN INDICATION
  4. RIVAROXABAN [Suspect]
     Indication: PRODUCT USED FOR UNKNOWN INDICATION
  5. GLICLAZIDE [Concomitant]
  6. NEBIVOLOL (NEBIVOLOL) (NEBIVOLOL) [Concomitant]
  7. DIGITOXIN (DIGITOXIN) [Concomitant]
  8. LISINOPRIL (LISINOPRIL) [Concomitant]

REACTIONS (7)
  - Drug interaction [None]
  - Blood bilirubin increased [None]
  - Anticonvulsant drug level above therapeutic [None]
  - Anticonvulsant drug level below therapeutic [None]
  - Gamma-glutamyltransferase increased [None]
  - Alanine aminotransferase increased [None]
  - Prothrombin time prolonged [None]
